FAERS Safety Report 11681378 (Version 1)
Quarter: 2015Q4

REPORT INFORMATION
  Report Type: Spontaneous
  Country: None (occurrence: None)
  Receive Date: 20151028
  Receipt Date: 20151028
  Transmission Date: 20160304
  Serious: Yes (Other)
  Sender: FDA-Public Use
  Company Number: None

PATIENT
  Age: 32 Year
  Sex: Female
  Weight: 86.18 kg

DRUGS (1)
  1. PLAN B [Suspect]
     Active Substance: LEVONORGESTREL
     Indication: DEVICE BREAKAGE
     Dosage: 1.5
     Route: 048
     Dates: start: 20151013, end: 20151013

REACTIONS (2)
  - Haemorrhage [None]
  - Breast pain [None]

NARRATIVE: CASE EVENT DATE: 20151014
